FAERS Safety Report 20951148 (Version 1)
Quarter: 2022Q2

REPORT INFORMATION
  Report Type: Spontaneous
  Country: JP (occurrence: JP)
  Receive Date: 20220613
  Receipt Date: 20220613
  Transmission Date: 20220721
  Serious: Yes (Other)
  Sender: FDA-Public Use
  Company Number: JP-PFIZER INC-202200788628

PATIENT
  Age: 19 Year
  Sex: Male

DRUGS (11)
  1. METHOTREXATE [Suspect]
     Active Substance: METHOTREXATE
     Indication: Hepatic cancer
     Dosage: 216 G/M2
  2. CISPLATIN [Suspect]
     Active Substance: CISPLATIN
     Indication: Hepatic cancer
     Dosage: 360 MG/M2
  3. CISPLATIN [Suspect]
     Active Substance: CISPLATIN
     Dosage: 500 MG/M2
  4. DOXORUBICIN [Suspect]
     Active Substance: DOXORUBICIN
     Indication: Hepatic cancer
     Dosage: 180 MG/M2
  5. IFOSFAMIDE [Suspect]
     Active Substance: IFOSFAMIDE
     Indication: Hepatic cancer
     Dosage: 36 G/M2
  6. PIRARUBICIN [Suspect]
     Active Substance: PIRARUBICIN
     Indication: Hepatic cancer
     Dosage: 585 MG/M2
  7. ETOPOSIDE [Suspect]
     Active Substance: ETOPOSIDE
     Indication: Hepatic cancer
     Dosage: 2 G/M2
  8. VINCRISTINE [Suspect]
     Active Substance: VINCRISTINE
     Indication: Hepatic cancer
     Dosage: 15 MG/M2
  9. THIOTEPA [Suspect]
     Active Substance: THIOTEPA
     Indication: Hepatic cancer
     Dosage: 26 MG/KG
  10. MELPHALAN [Suspect]
     Active Substance: MELPHALAN
     Indication: Hepatic cancer
     Dosage: 6 MG/KG
  11. CYCLOPHOSPHAMIDE [Suspect]
     Active Substance: CYCLOPHOSPHAMIDE

REACTIONS (2)
  - Cardiac dysfunction [Unknown]
  - Basal cell naevus syndrome [Unknown]
